FAERS Safety Report 7376412 (Version 9)
Quarter: 2013Q3

REPORT INFORMATION
  Report Type: Report from Study
  Country: US (occurrence: US)
  Receive Date: 20100504
  Receipt Date: 20130709
  Transmission Date: 20140515
  Serious: Yes (Hospitalization)
  Sender: FDA-Public Use
  Company Number: US-ROCHE-699983

PATIENT
  Age: 61 Year
  Sex: Female
  Weight: 89.1 kg

DRUGS (13)
  1. BEVACIZUMAB [Suspect]
     Indication: HER-2 POSITIVE BREAST CANCER
     Dosage: DOSE LEVEL:15MG/KG, FORM:VIALS, DATE OF LAST DOSE PRIOR TO SAE:08APRIL2010, PERMANENTLY DISCONTINUED
     Route: 042
     Dates: start: 20091203, end: 20100429
  2. TRASTUZUMAB [Suspect]
     Indication: HER-2 POSITIVE BREAST CANCER
     Dosage: FORM:VIALS, DATE OF LAST DOSE PRIOR TO SAE:08 APRIL 2010, LOADING DOSE AT 8 MG/KG
     Route: 042
  3. TRASTUZUMAB [Suspect]
     Dosage: MAINTENANCE DOSE: 6MG/KG
     Route: 042
  4. DOCETAXEL [Suspect]
     Indication: HER-2 POSITIVE BREAST CANCER
     Dosage: DOSE LEVEL:75MG/M2, FORM:VIALS, DATE OF LAST DOSE PRIOR TO SAE:18 MARCH 2010
     Route: 042
     Dates: start: 20091203
  5. CARBOPLATIN [Suspect]
     Indication: HER-2 POSITIVE BREAST CANCER
     Dosage: DOSE LEVEL:6AUC, FORM:VIALS, DATE OF LAST DOSE PRIOR TO SAE:18 MARCH 2010
     Route: 042
     Dates: start: 20091203
  6. COUMADIN [Concomitant]
     Dosage: DOSE: VARIABLE, UNIT: MG
     Route: 065
     Dates: start: 20100330, end: 20100423
  7. RANITIDINE [Concomitant]
     Route: 065
  8. CALCIUM CARBONATE [Concomitant]
     Dosage: TOTAL DAILY DOSE: 2 TABS/DAY
     Route: 065
  9. LISINOPRIL [Concomitant]
     Route: 065
  10. AMBIEN CR [Concomitant]
     Route: 065
  11. ATIVAN [Concomitant]
     Route: 065
  12. PAXIL [Concomitant]
     Route: 065
  13. MEGACE SUSPENSION [Concomitant]
     Dosage: DRUG NAME: MEGACE SUSP.?TOTAL DAILY DOSE: 5 CC/DAY
     Route: 065

REACTIONS (2)
  - Gastric haemorrhage [Recovered/Resolved]
  - Gastric ulcer [Recovered/Resolved]
